FAERS Safety Report 12962213 (Version 1)
Quarter: 2016Q4

REPORT INFORMATION
  Report Type: Spontaneous
  Country: GB (occurrence: GB)
  Receive Date: 20161121
  Receipt Date: 20161121
  Transmission Date: 20170207
  Serious: Yes (Other)
  Sender: FDA-Public Use
  Company Number: ALCN2016GB007749

PATIENT
  Age: 73 Year
  Sex: Male
  Weight: 80 kg

DRUGS (3)
  1. WARFARIN [Concomitant]
     Active Substance: WARFARIN
     Indication: PRODUCT USED FOR UNKNOWN INDICATION
     Dosage: UNK
     Route: 065
  2. SIMBRINZA [Suspect]
     Active Substance: BRIMONIDINE TARTRATE\BRINZOLAMIDE
     Indication: OCULAR HYPERTENSION
     Dosage: 2 GTT, BID
     Route: 047
     Dates: start: 20161101, end: 20161103
  3. DILTIAZEM HYDROCHLORIDE. [Concomitant]
     Active Substance: DILTIAZEM HYDROCHLORIDE
     Indication: ATRIAL FIBRILLATION
     Dosage: UNK
     Route: 065

REACTIONS (3)
  - Fatigue [Recovered/Resolved]
  - Dizziness [Recovered/Resolved]
  - Blood pressure decreased [Recovered/Resolved]

NARRATIVE: CASE EVENT DATE: 20161101
